FAERS Safety Report 8334623-4 (Version None)
Quarter: 2012Q2

REPORT INFORMATION
  Report Type: 
  Country: None (occurrence: None)
  Receive Date: 20120503
  Receipt Date: 20120425
  Transmission Date: 20120825
  Serious: No
  Sender: FDA-Public Use
  Company Number: US-B.I. PHARMACEUTICALS,INC./RIDGEFIELD-2012-BP-05895BP

PATIENT
  Sex: Male
  Weight: 102.51 kg

DRUGS (6)
  1. FISH OIL [Concomitant]
     Indication: ROUTINE HEALTH MAINTENANCE
     Route: 048
  2. LIPITOR [Concomitant]
  3. COQ10 [Concomitant]
     Indication: ROUTINE HEALTH MAINTENANCE
     Route: 048
  4. MULTI-VITAMINS [Concomitant]
     Indication: ROUTINE HEALTH MAINTENANCE
     Route: 048
  5. HYZAAR [Concomitant]
     Indication: HYPERTENSION
     Route: 048
  6. PRADAXA [Suspect]
     Indication: ATRIAL FIBRILLATION
     Dosage: 300 MG
     Route: 048
     Dates: start: 20110622, end: 20120329

REACTIONS (2)
  - ARTHRALGIA [None]
  - DIARRHOEA [None]
